FAERS Safety Report 9202531 (Version 9)
Quarter: 2013Q4

REPORT INFORMATION
  Report Type: Report from Study
  Country: DE (occurrence: DE)
  Receive Date: 20130401
  Receipt Date: 20131015
  Transmission Date: 20140711
  Serious: Yes (Hospitalization, Other)
  Sender: FDA-Public Use
  Company Number: DE-AMGEN-DEUNI2013022265

PATIENT
  Age: 69 Year
  Sex: Female

DRUGS (6)
  1. DENOSUMAB [Suspect]
     Indication: OSTEOPOROSIS POSTMENOPAUSAL
     Dosage: UNK UNK, Q6MO
     Route: 058
     Dates: start: 20120213, end: 20120821
  2. PANTOPRAZOL [Concomitant]
     Dosage: 20 MG, QD
     Route: 048
  3. SYMBICORT [Concomitant]
     Dosage: UNK UNK, BID
     Route: 055
  4. EXFORGE [Concomitant]
     Route: 048
  5. TREVILOR [Concomitant]
     Dosage: 75 MG, QD
     Route: 048
  6. SALBUTAMOL [Concomitant]
     Dosage: UNK UNK, BID
     Route: 055

REACTIONS (1)
  - Osteonecrosis of jaw [Recovered/Resolved]
